FAERS Safety Report 6267521-0 (Version None)
Quarter: 2009Q3

REPORT INFORMATION
  Report Type: 
  Country: None (occurrence: None)
  Receive Date: 20090714
  Receipt Date: 20090630
  Transmission Date: 20100115
  Serious: Yes (Other)
  Sender: FDA-Public Use
  Company Number: NL-JNJFOC-20090605871

PATIENT
  Sex: Male
  Weight: 72 kg

DRUGS (6)
  1. ZALDIAR [Suspect]
     Indication: MUSCLE SPASMS
     Route: 048
  2. METFORMIN HCL [Concomitant]
     Route: 065
  3. INSULIN [Concomitant]
     Route: 065
  4. SERETIDE [Concomitant]
     Route: 065
  5. DIAMICRON [Concomitant]
     Route: 065
  6. ASCAL [Concomitant]
     Route: 065

REACTIONS (3)
  - ASTHMA [None]
  - CHRONIC OBSTRUCTIVE PULMONARY DISEASE [None]
  - DYSPNOEA [None]
